FAERS Safety Report 9529803 (Version 2)
Quarter: 2013Q4

REPORT INFORMATION
  Report Type: Report from Study
  Country: JP (occurrence: JP)
  Receive Date: 20130917
  Receipt Date: 20131025
  Transmission Date: 20140711
  Serious: Yes (Life-Threatening, Other)
  Sender: FDA-Public Use
  Company Number: JP-TAKEDA-2013TJP000597

PATIENT
  Age: 62 Year
  Sex: Male
  Weight: 97 kg

DRUGS (3)
  1. ALOGLIPTIN, PIOGLITAZONE [Suspect]
     Dosage: 1 DF, QD
     Route: 048
     Dates: start: 20120304, end: 20120920
  2. UNISIA COMBINATION TABLETS HD [Concomitant]
     Route: 048
     Dates: end: 20120920
  3. ZYLORIC [Concomitant]
     Dosage: 100 MG, UNK
     Route: 048
     Dates: end: 20120920

REACTIONS (1)
  - Hepatic cancer [Not Recovered/Not Resolved]
